FAERS Safety Report 9866957 (Version 1)
Quarter: 2014Q1

REPORT INFORMATION
  Report Type: Spontaneous
  Country: US (occurrence: US)
  Receive Date: 20140204
  Receipt Date: 20140204
  Transmission Date: 20141002
  Serious: No
  Sender: FDA-Public Use
  Company Number: US-PFIZER INC-2014031102

PATIENT
  Age: 45 Year
  Sex: Male
  Weight: 97.05 kg

DRUGS (6)
  1. GABAPENTIN [Suspect]
     Indication: DIABETIC NEUROPATHY
     Dosage: UNK, 1X/DAY
     Route: 048
     Dates: start: 2003, end: 2003
  2. INSULIN [Concomitant]
     Dosage: UNK
  3. LEVOTHYROXINE [Concomitant]
     Dosage: UNK
  4. OMEPRAZOLE [Concomitant]
     Dosage: 80 MG, UNK
  5. CARISOPRODOL [Concomitant]
     Dosage: 350 MG, UNK
  6. ASPIRIN [Concomitant]
     Dosage: UNK

REACTIONS (1)
  - Drug ineffective for unapproved indication [Unknown]
